FAERS Safety Report 13458528 (Version 1)
Quarter: 2017Q2

REPORT INFORMATION
  Report Type: Spontaneous
  Country: CZ (occurrence: CZ)
  Receive Date: 20170419
  Receipt Date: 20170419
  Transmission Date: 20170830
  Serious: Yes (Other)
  Sender: FDA-Public Use
  Company Number: CZ-ALKABELLO-2017AA001273

PATIENT
  Age: 26 Year
  Sex: Female
  Weight: 60 kg

DRUGS (1)
  1. GRAZAX [Suspect]
     Active Substance: PHLEUM PRATENSE POLLEN
     Indication: SEASONAL ALLERGY
     Dosage: DOSE UNIT:75000 SQ
     Dates: start: 20170308, end: 20170316

REACTIONS (3)
  - Mouth swelling [Not Recovered/Not Resolved]
  - Oral pruritus [Unknown]
  - Salivary gland enlargement [Not Recovered/Not Resolved]

NARRATIVE: CASE EVENT DATE: 20170308
